FAERS Safety Report 12266827 (Version 1)
Quarter: 2016Q2

REPORT INFORMATION
  Report Type: Spontaneous
  Country: US (occurrence: None)
  Receive Date: 20160413
  Receipt Date: 20160413
  Transmission Date: 20160815
  Serious: No
  Sender: FDA-Public Use
  Company Number: None

PATIENT
  Age: 76 Year
  Sex: Female
  Weight: 53.52 kg

DRUGS (2)
  1. L-THYROXINE 75MCG LANNETT CO., INC.GENERIC [Suspect]
     Active Substance: LEVOTHYROXINE
     Dosage: 1 PILL ONCE A DAY BEFORE I EAT
     Route: 048
     Dates: start: 201502, end: 20160224
  2. VITAMIN D3 [Concomitant]
     Active Substance: CHOLECALCIFEROL

REACTIONS (1)
  - Alopecia [None]

NARRATIVE: CASE EVENT DATE: 201502
